FAERS Safety Report 9037052 (Version 3)
Quarter: 2013Q1

REPORT INFORMATION
  Report Type: Spontaneous
  Country: US (occurrence: None)
  Receive Date: 20130131
  Receipt Date: 20130204
  Transmission Date: 20140127
  Serious: Yes (Other)
  Sender: FDA-Public Use
  Company Number: US-1196135

PATIENT
  Age: 58 Year
  Sex: Female
  Weight: 58.97 kg

DRUGS (3)
  1. SYSTANE [Suspect]
     Indication: DRY EYE
     Dosage: 2 GTT OU OPHTHALMIC
     Route: 047
     Dates: start: 20130108, end: 20130109
  2. SYSTANE [Suspect]
     Indication: FOREIGN BODY SENSATION IN EYES
     Dosage: 2 GTT OU OPHTHALMIC
     Route: 047
     Dates: start: 20130108, end: 20130109
  3. VITAMIN D3 [Concomitant]

REACTIONS (2)
  - Ulcerative keratitis [None]
  - Expired drug administered [None]
